FAERS Safety Report 13614531 (Version 1)
Quarter: 2017Q2

REPORT INFORMATION
  Report Type: Spontaneous
  Country: US (occurrence: US)
  Receive Date: 20170605
  Receipt Date: 20170605
  Transmission Date: 20170830
  Serious: No
  Sender: FDA-Public Use
  Company Number: None

PATIENT
  Age: 52 Year
  Sex: Female
  Weight: 99 kg

DRUGS (1)
  1. TUMS ULTRA [Suspect]
     Active Substance: CALCIUM CARBONATE
     Indication: GASTRIC PH DECREASED
     Route: 048
     Dates: start: 20170524, end: 20170603

REACTIONS (5)
  - Abdominal discomfort [None]
  - Drug ineffective [None]
  - Diarrhoea [None]
  - Flatulence [None]
  - Muscle spasms [None]

NARRATIVE: CASE EVENT DATE: 20170525
